FAERS Safety Report 15072926 (Version 1)
Quarter: 2018Q2

REPORT INFORMATION
  Report Type: Spontaneous
  Country: US (occurrence: US)
  Receive Date: 20180627
  Receipt Date: 20180627
  Transmission Date: 20180711
  Serious: No
  Sender: FDA-Public Use
  Company Number: US-TEVA-2018-US-917686

PATIENT
  Age: 62 Year
  Sex: Female

DRUGS (1)
  1. AUSTEDO [Suspect]
     Active Substance: DEUTETRABENAZINE
     Indication: TARDIVE DYSKINESIA
     Route: 065
     Dates: start: 20180309

REACTIONS (3)
  - Pyrexia [Unknown]
  - Accidental overdose [Unknown]
  - Tremor [Unknown]

NARRATIVE: CASE EVENT DATE: 2018
